FAERS Safety Report 18185883 (Version 4)
Quarter: 2021Q1

REPORT INFORMATION
  Report Type: Report from Study
  Country: None (occurrence: US)
  Receive Date: 20200824
  Receipt Date: 20210208
  Transmission Date: 20210419
  Serious: Yes (Hospitalization, Other)
  Sender: FDA-Public Use
  Company Number: US-ABBVIE-20K-163-3535997-00

PATIENT
  Age: 62 Year
  Sex: Male
  Weight: 105.78 kg

DRUGS (5)
  1. BENICAR [Concomitant]
     Active Substance: OLMESARTAN MEDOXOMIL
     Indication: BLOOD PRESSURE MEASUREMENT
  2. MAVYRET [Suspect]
     Active Substance: GLECAPREVIR\PIBRENTASVIR
     Route: 048
  3. GLUCOVANCE [Concomitant]
     Active Substance: GLYBURIDE\METFORMIN HYDROCHLORIDE
     Indication: TYPE 2 DIABETES MELLITUS
  4. MAVYRET [Suspect]
     Active Substance: GLECAPREVIR\PIBRENTASVIR
     Indication: CHRONIC HEPATITIS C
     Dosage: 100/40 MG
     Route: 048
     Dates: start: 20200605, end: 20200731
  5. GLYBURIDE. [Concomitant]
     Active Substance: GLYBURIDE
     Indication: TYPE 2 DIABETES MELLITUS

REACTIONS (17)
  - Balance disorder [Not Recovered/Not Resolved]
  - Loss of personal independence in daily activities [Not Recovered/Not Resolved]
  - Blood creatine phosphokinase increased [Not Recovered/Not Resolved]
  - Polymyositis [Not Recovered/Not Resolved]
  - Antibody test abnormal [Not Recovered/Not Resolved]
  - Immune-mediated myositis [Not Recovered/Not Resolved]
  - Blood lactate dehydrogenase increased [Not Recovered/Not Resolved]
  - Muscular weakness [Not Recovered/Not Resolved]
  - Fall [Recovered/Resolved]
  - Joint range of motion decreased [Not Recovered/Not Resolved]
  - Antibody test abnormal [Not Recovered/Not Resolved]
  - Blood creatine phosphokinase increased [Not Recovered/Not Resolved]
  - Aldolase increased [Not Recovered/Not Resolved]
  - Blood creatine phosphokinase increased [Not Recovered/Not Resolved]
  - Muscular weakness [Not Recovered/Not Resolved]
  - Gait disturbance [Not Recovered/Not Resolved]
  - C-reactive protein increased [Not Recovered/Not Resolved]

NARRATIVE: CASE EVENT DATE: 2020
